FAERS Safety Report 8389097-4 (Version None)
Quarter: 2012Q2

REPORT INFORMATION
  Report Type: 
  Country: None (occurrence: None)
  Receive Date: 20120528
  Receipt Date: 20120522
  Transmission Date: 20120825
  Serious: Yes (Other)
  Sender: FDA-Public Use
  Company Number: PHFR2012GB003111

PATIENT
  Sex: Male

DRUGS (1)
  1. CLOZARIL [Suspect]
     Dosage: UNK UKN, UNK
     Route: 048
     Dates: start: 20100913

REACTIONS (1)
  - OROPHARYNGITIS FUNGAL [None]
